FAERS Safety Report 17019773 (Version 1)
Quarter: 2019Q4

REPORT INFORMATION
  Report Type: Spontaneous
  Country: US (occurrence: US)
  Receive Date: 20191112
  Receipt Date: 20191112
  Transmission Date: 20200122
  Serious: No
  Sender: FDA-Public Use
  Company Number: US-BTG-201900130

PATIENT
  Sex: Male

DRUGS (2)
  1. CROFAB [Suspect]
     Active Substance: CROTALIDAE POLYVALENT IMMUNE FAB (OVINE)
     Indication: SNAKE BITE
     Dosage: FIRST TREATMENT CYCLE (6 INITIAL CONTROL VIALS IN TOTAL AFTER 1ST+2ND CYCLE)
     Route: 065
     Dates: start: 201812
  2. CROFAB [Suspect]
     Active Substance: CROTALIDAE POLYVALENT IMMUNE FAB (OVINE)
     Indication: SNAKE BITE
     Dosage: SECOND TREATMENT CYCLE (6 INITIAL CONTROL VIALS IN TOTAL AFTER 1ST+2ND CYCLE)
     Route: 065
     Dates: start: 201812

REACTIONS (2)
  - Peripheral swelling [Recovering/Resolving]
  - Inappropriate schedule of product administration [Unknown]

NARRATIVE: CASE EVENT DATE: 201812
